FAERS Safety Report 20058300 (Version 1)
Quarter: 2021Q4

REPORT INFORMATION
  Report Type: Report from Study
  Country: US (occurrence: US)
  Receive Date: 20211111
  Receipt Date: 20211111
  Transmission Date: 20220303
  Serious: Yes (Other)
  Sender: FDA-Public Use
  Company Number: US-KYOWAKIRIN-2021BKK018874

PATIENT

DRUGS (1)
  1. CRYSVITA [Suspect]
     Active Substance: BUROSUMAB-TWZA
     Indication: Hypophosphataemic osteomalacia
     Dosage: 30 MG, EVERY 4 WEEKS
     Route: 065

REACTIONS (2)
  - Post procedural complication [Unknown]
  - Parathyroidectomy [Unknown]

NARRATIVE: CASE EVENT DATE: 20211001
